FAERS Safety Report 4693160-9 (Version None)
Quarter: 2005Q2

REPORT INFORMATION
  Report Type: 
  Country: None (occurrence: None)
  Receive Date: 20050617
  Receipt Date: 20050603
  Transmission Date: 20051028
  Serious: No
  Sender: FDA-Public Use
  Company Number: DE-JNJFOC-20050502012

PATIENT
  Sex: Female
  Weight: 61 kg

DRUGS (4)
  1. TOPIRAMATE [Suspect]
     Route: 049
  2. TOPIRAMATE [Suspect]
     Route: 049
  3. TOPIRAMATE [Suspect]
     Route: 049
  4. TOPIRAMATE [Suspect]
     Indication: MIGRAINE PROPHYLAXIS
     Route: 049

REACTIONS (1)
  - NO ADVERSE DRUG EFFECT [None]
